FAERS Safety Report 6555133-0 (Version None)
Quarter: 2010Q1

REPORT INFORMATION
  Report Type: 
  Country: None (occurrence: None)
  Receive Date: 20100128
  Receipt Date: 20100121
  Transmission Date: 20100710
  Serious: Yes (Other)
  Sender: FDA-Public Use
  Company Number: US-ALLERGAN-1000916US

PATIENT
  Age: 36 Year
  Sex: Female

DRUGS (1)
  1. PREDNISOLONE ACETATE SUS [Suspect]
     Indication: TRANSPLANT FAILURE
     Dosage: UNK
     Route: 047

REACTIONS (1)
  - SQUAMOUS CELL CARCINOMA [None]
